FAERS Safety Report 4764191-5 (Version None)
Quarter: 2005Q3

REPORT INFORMATION
  Report Type: 
  Country: None (occurrence: None)
  Receive Date: 20050902
  Receipt Date: 20050516
  Transmission Date: 20060218
  Serious: No
  Sender: FDA-Public Use
  Company Number: MPS1-10382

PATIENT
  Age: 19 Year
  Sex: Female
  Weight: 120.6568 kg

DRUGS (1)
  1. ALDURAZYME [Suspect]
     Dates: start: 20050225

REACTIONS (2)
  - CHILLS [None]
  - PYREXIA [None]
